FAERS Safety Report 7443678-0 (Version None)
Quarter: 2011Q2

REPORT INFORMATION
  Report Type: 
  Country: None (occurrence: None)
  Receive Date: 20110428
  Receipt Date: 20110415
  Transmission Date: 20111010
  Serious: Yes (Other)
  Sender: FDA-Public Use
  Company Number: CA-GENENTECH-313030

PATIENT
  Sex: Male
  Weight: 70 kg

DRUGS (1)
  1. XOLAIR [Suspect]
     Indication: ASTHMA
     Dosage: 225 MG, Q2W
     Route: 058
     Dates: start: 20060407

REACTIONS (5)
  - SPINAL FRACTURE [None]
  - SNEEZING [None]
  - FALL [None]
  - RIB FRACTURE [None]
  - PAIN [None]
